FAERS Safety Report 16051424 (Version 1)
Quarter: 2019Q2

REPORT INFORMATION
  Report Type: Spontaneous
  Country: US (occurrence: US)
  Receive Date: 20190307
  Receipt Date: 20190307
  Transmission Date: 20190711
  Serious: Yes (Other)
  Sender: FDA-Public Use
  Company Number: None

PATIENT
  Age: 38 Year
  Sex: Male
  Weight: 81.96 kg

DRUGS (7)
  1. POTASSIUM CHLORIDE. [Concomitant]
     Active Substance: POTASSIUM CHLORIDE
     Dates: start: 20140617, end: 20190307
  2. TRUVADA [Suspect]
     Active Substance: EMTRICITABINE\TENOFOVIR DISOPROXIL FUMARATE
     Indication: PRODUCT USED FOR UNKNOWN INDICATION
     Dates: start: 20190215, end: 20190215
  3. RIFAXIMIN. [Concomitant]
     Active Substance: RIFAXIMIN
     Dates: start: 20190214, end: 20190307
  4. FLUOXETINE [Concomitant]
     Active Substance: FLUOXETINE HYDROCHLORIDE
     Dates: start: 20170710, end: 20190307
  5. DOXYCYCLINE. [Concomitant]
     Active Substance: DOXYCYCLINE
     Dates: start: 20190215, end: 20190307
  6. HYDROXYZINE [Concomitant]
     Active Substance: HYDROXYZINE HYDROCHLORIDE
     Dates: start: 20170710, end: 20190307
  7. PRAZOSIN. [Concomitant]
     Active Substance: PRAZOSIN
     Dates: start: 20170823, end: 20190307

REACTIONS (2)
  - Ear pain [None]
  - Tinnitus [None]

NARRATIVE: CASE EVENT DATE: 20190215
